FAERS Safety Report 9845683 (Version 1)
Quarter: 2014Q1

REPORT INFORMATION
  Report Type: Spontaneous
  Country: US (occurrence: US)
  Receive Date: 20140127
  Receipt Date: 20140127
  Transmission Date: 20141002
  Serious: No
  Sender: FDA-Public Use
  Company Number: US-PFIZER INC-2014024287

PATIENT
  Age: 51 Year
  Sex: Female
  Weight: 102 kg

DRUGS (4)
  1. LYRICA [Suspect]
     Indication: NEUROPATHY PERIPHERAL
     Dosage: 200 MG, 2X/DAY
  2. CYMBALTA [Suspect]
     Indication: DEPRESSION
     Dosage: UNK [60MG IN MORNING AND 30MG AT NIGHT], 2X/DAY
  3. TRILIPIX [Concomitant]
     Indication: BLOOD TRIGLYCERIDES ABNORMAL
     Dosage: 135 MG, 2X/DAY
  4. NOVOLOG [Concomitant]
     Indication: DIABETES MELLITUS
     Dosage: UNK,2X/DAY

REACTIONS (1)
  - Weight increased [Unknown]
